FAERS Safety Report 6426566-8 (Version None)
Quarter: 2009Q4

REPORT INFORMATION
  Report Type: 
  Country: None (occurrence: None)
  Receive Date: 20091030
  Receipt Date: 20090819
  Transmission Date: 20100525
  Serious: Yes (Hospitalization)
  Sender: FDA-Public Use
  Company Number: 001613

PATIENT
  Age: 25 Year
  Sex: Female
  Weight: 65 kg

DRUGS (3)
  1. VIMPAT [Suspect]
     Indication: GRAND MAL CONVULSION
     Dosage: 100 MG BID ORAL, 400 MG
     Route: 048
     Dates: start: 20090601
  2. LAMOTRIGINE [Concomitant]
  3. RISPERDAL [Concomitant]

REACTIONS (1)
  - GRAND MAL CONVULSION [None]
